FAERS Safety Report 15741455 (Version 1)
Quarter: 2018Q4

REPORT INFORMATION
  Report Type: Report from Study
  Country: FR (occurrence: FR)
  Receive Date: 20181219
  Receipt Date: 20181219
  Transmission Date: 20190205
  Serious: Yes (Other)
  Sender: FDA-Public Use
  Company Number: FR-JAZZ-2018-FR-014951

PATIENT

DRUGS (1)
  1. DEFITELIO [Suspect]
     Active Substance: DEFIBROTIDE SODIUM
     Indication: PROPHYLAXIS
     Dosage: 21.3 MG/KG, QD
     Dates: start: 20170821, end: 20170915

REACTIONS (1)
  - Acute graft versus host disease [Unknown]

NARRATIVE: CASE EVENT DATE: 20170919
